FAERS Safety Report 23513663 (Version 1)
Quarter: 2024Q1

REPORT INFORMATION
  Report Type: Spontaneous
  Country: GB (occurrence: GB)
  Receive Date: 20240212
  Receipt Date: 20240212
  Transmission Date: 20240409
  Serious: Yes (Other)
  Sender: FDA-Public Use
  Company Number: GB-SA-2024SA039673

PATIENT
  Sex: Male

DRUGS (6)
  1. PRALUENT [Suspect]
     Active Substance: ALIROCUMAB
     Indication: Hypercholesterolaemia
     Dosage: 75 MG, QOW
  2. ACYCLOVIR [Concomitant]
     Active Substance: ACYCLOVIR
  3. METFORMIN [Concomitant]
     Active Substance: METFORMIN HYDROCHLORIDE
  4. LANSOPRAZOLE [Concomitant]
     Active Substance: LANSOPRAZOLE
  5. ALBUTEROL [Concomitant]
     Active Substance: ALBUTEROL
  6. BECLOMETHASONE DIPROPIONATE [Concomitant]
     Active Substance: BECLOMETHASONE DIPROPIONATE
     Route: 055

REACTIONS (4)
  - Uveitis [Recovered/Resolved]
  - Subretinal fluid [Recovered/Resolved]
  - Vision blurred [Recovered/Resolved]
  - Respiratory tract infection [Recovered/Resolved]
